FAERS Safety Report 12733274 (Version 4)
Quarter: 2018Q3

REPORT INFORMATION
  Report Type: Spontaneous
  Country: JP (occurrence: JP)
  Receive Date: 20160912
  Receipt Date: 20180706
  Transmission Date: 20181010
  Serious: Yes (Hospitalization)
  Sender: FDA-Public Use
  Company Number: JP-CONCORDIA PHARMACEUTICALS INC.-E2B_00007832

PATIENT
  Age: 38 Year
  Sex: Female

DRUGS (1)
  1. PLAQUENIL [Suspect]
     Active Substance: HYDROXYCHLOROQUINE SULFATE
     Indication: NEUROPSYCHIATRIC LUPUS
     Route: 048

REACTIONS (3)
  - Visual field defect [Unknown]
  - Condition aggravated [Unknown]
  - Neuropsychiatric lupus [Unknown]
